FAERS Safety Report 18766061 (Version 1)
Quarter: 2021Q1

REPORT INFORMATION
  Report Type: Report from Study
  Country: US (occurrence: US)
  Receive Date: 20210121
  Receipt Date: 20210121
  Transmission Date: 20210419
  Serious: Yes (Hospitalization, Other)
  Sender: FDA-Public Use
  Company Number: US-BAUSCH-BL-2021-000980

PATIENT
  Age: 57 Year
  Sex: Female

DRUGS (2)
  1. SYPRINE [Suspect]
     Active Substance: TRIENTINE HYDROCHLORIDE
     Indication: HEPATO-LENTICULAR DEGENERATION
     Dosage: STARTED APPROXIMATELY 4 YEARS AGO
     Route: 048
     Dates: end: 202002
  2. ZINC. [Concomitant]
     Active Substance: ZINC
     Indication: PRODUCT USED FOR UNKNOWN INDICATION
     Route: 048

REACTIONS (4)
  - Schizophrenia [Unknown]
  - Therapy interrupted [Unknown]
  - Vertigo [Unknown]
  - Bipolar disorder [Unknown]

NARRATIVE: CASE EVENT DATE: 202002
